FAERS Safety Report 24254730 (Version 1)
Quarter: 2024Q3

REPORT INFORMATION
  Report Type: Report from Study
  Country: US (occurrence: US)
  Receive Date: 20240827
  Receipt Date: 20240827
  Transmission Date: 20241017
  Serious: Yes (Other)
  Sender: NOVARTIS
  Company Number: US-002147023-NVSC2023US281016

PATIENT
  Sex: Male

DRUGS (1)
  1. ENTRESTO [Suspect]
     Active Substance: SACUBITRIL\VALSARTAN
     Indication: Product used for unknown indication
     Dosage: 49.51 MG, BID
     Route: 048

REACTIONS (3)
  - Cardiac failure congestive [Unknown]
  - Visual impairment [Unknown]
  - Wrong technique in product usage process [Recovered/Resolved]

NARRATIVE: CASE EVENT DATE: 20221012
